FAERS Safety Report 22038230 (Version 1)
Quarter: 2023Q1

REPORT INFORMATION
  Report Type: Spontaneous
  Country: JP (occurrence: JP)
  Receive Date: 20230227
  Receipt Date: 20230227
  Transmission Date: 20230418
  Serious: Yes (Other)
  Sender: FDA-Public Use
  Company Number: JP-SUN PHARMACEUTICAL INDUSTRIES LTD-2023RR-379611

PATIENT
  Age: 80 Year
  Sex: Male
  Weight: 55.6 kg

DRUGS (5)
  1. NIFEDIPINE [Interacting]
     Active Substance: NIFEDIPINE
     Indication: Fanconi syndrome
     Dosage: UNK
     Route: 065
  2. FEBUXOSTAT [Interacting]
     Active Substance: FEBUXOSTAT
     Indication: Fanconi syndrome
     Dosage: UNK
     Route: 065
  3. PITAVASTATIN [Interacting]
     Active Substance: PITAVASTATIN
     Indication: Fanconi syndrome
     Dosage: UNK
     Route: 065
  4. AZILSARTAN KAMEDOXOMIL [Interacting]
     Active Substance: AZILSARTAN KAMEDOXOMIL
     Indication: Fanconi syndrome
     Dosage: UNK
     Route: 065
  5. MIZORIBINE [Interacting]
     Active Substance: MIZORIBINE
     Indication: Glomerulonephritis membranous
     Dosage: 100 MILLIGRAM, DAILY
     Route: 065

REACTIONS (1)
  - Drug interaction [Unknown]
